FAERS Safety Report 7545375-X (Version None)
Quarter: 2011Q2

REPORT INFORMATION
  Report Type: 
  Country: None (occurrence: None)
  Receive Date: 20110607
  Receipt Date: 20110531
  Transmission Date: 20111010
  Serious: No
  Sender: FDA-Public Use
  Company Number: HA11-128-AE

PATIENT
  Age: 68 Year
  Sex: Female
  Weight: 61.6892 kg

DRUGS (14)
  1. CODEINE TABLET [Concomitant]
  2. NAPROXEN [Suspect]
     Indication: OSTEOARTHRITIS
     Dosage: HIGH DOSE, 3X/DAY, ORAL
     Route: 048
     Dates: start: 20101129, end: 20110508
  3. CELECOXIB [Suspect]
     Indication: OSTEOARTHRITIS
     Dosage: HIGH DOSE, 3X/DAY, ORAL
     Route: 048
     Dates: start: 20101129, end: 20110508
  4. LEVOTHYROXINE SODIUM (PURAN T4) [Concomitant]
  5. ACETAMINOPHEN [Concomitant]
  6. ADITIL [Concomitant]
  7. GLICLAZIDE [Concomitant]
  8. ATORVASTATIN [Concomitant]
  9. ASPIRIN [Concomitant]
  10. ACARBOSE [Concomitant]
  11. CALCIUM CARBONATE TABLETS [Concomitant]
  12. NEXIUM [Concomitant]
  13. METFORMIN HCL [Concomitant]
  14. CYCLOBENZAPRINE TABLETS [Concomitant]

REACTIONS (5)
  - CARCINOID TUMOUR [None]
  - GASTRIC NEOPLASM [None]
  - NEUROENDOCRINE TUMOUR [None]
  - GASTRITIS [None]
  - GASTRIC POLYPS [None]
